FAERS Safety Report 8308834-8 (Version None)
Quarter: 2012Q2

REPORT INFORMATION
  Report Type: 
  Country: None (occurrence: None)
  Receive Date: 20120424
  Receipt Date: 20120413
  Transmission Date: 20120825
  Serious: Yes (Hospitalization)
  Sender: FDA-Public Use
  Company Number: US-ACTELION-A-US2012-63534

PATIENT

DRUGS (3)
  1. EPOPROSTENOL SODIUM [Suspect]
     Indication: PULMONARY ARTERIAL HYPERTENSION
     Dosage: 22 NG/KG, PER MIN
     Route: 042
     Dates: start: 20120113
  2. EPOPROSTENOL SODIUM [Suspect]
     Dosage: 18 NG/KG, PER MIN
     Route: 042
  3. ADCIRCA [Concomitant]

REACTIONS (3)
  - ERYTHEMA [None]
  - RASH [None]
  - HEADACHE [None]
